FAERS Safety Report 7557983-0 (Version None)
Quarter: 2011Q2

REPORT INFORMATION
  Report Type: 
  Country: None (occurrence: None)
  Receive Date: 20110620
  Receipt Date: 20110606
  Transmission Date: 20111010
  Serious: Yes (Hospitalization)
  Sender: FDA-Public Use
  Company Number: DE-ASTRAZENECA-2011SE22670

PATIENT
  Age: 66 Year
  Sex: Female
  Weight: 103 kg

DRUGS (10)
  1. SEROQUEL [Suspect]
     Route: 048
     Dates: start: 20100701, end: 20100801
  2. SEROQUEL [Suspect]
     Route: 048
     Dates: start: 20101001, end: 20101017
  3. SEROQUEL [Suspect]
     Route: 048
     Dates: start: 20101201, end: 20110401
  4. SEROQUEL [Suspect]
     Route: 048
     Dates: start: 20110501
  5. SEROQUEL [Suspect]
     Route: 048
     Dates: start: 20101201, end: 20110117
  6. LEVOTHYROXINE SODIUM [Concomitant]
     Indication: AUTOIMMUNE THYROIDITIS
  7. MADOPAR [Concomitant]
  8. SEROQUEL [Suspect]
     Indication: BIPOLAR DISORDER
     Route: 048
     Dates: start: 20100601, end: 20100701
  9. SEROQUEL [Suspect]
     Route: 048
     Dates: start: 20101018, end: 20101201
  10. LAMOTRIGINE [Concomitant]
     Route: 048

REACTIONS (3)
  - SPEECH DISORDER [None]
  - PARKINSONISM [None]
  - DRY MOUTH [None]
